FAERS Safety Report 5498888-9 (Version None)
Quarter: 2007Q4

REPORT INFORMATION
  Report Type: 
  Country: None (occurrence: None)
  Receive Date: 20071026
  Receipt Date: 20070801
  Transmission Date: 20080405
  Serious: No
  Sender: FDA-Public Use
  Company Number: A0667655A

PATIENT
  Age: 25 Year
  Sex: Female

DRUGS (7)
  1. ADVAIR DISKUS 100/50 [Suspect]
     Indication: ASTHMA
     Dosage: 1PUFF TWICE PER DAY
     Route: 055
     Dates: start: 20070624, end: 20070710
  2. SINGULAIR [Concomitant]
  3. ZYRTEC-D [Concomitant]
  4. PAXIL CR [Concomitant]
  5. UNKNOWN MEDICATION [Concomitant]
  6. LEVBID [Concomitant]
  7. PREVACID [Concomitant]

REACTIONS (3)
  - CHEST DISCOMFORT [None]
  - CHEST PAIN [None]
  - DYSPNOEA [None]
